FAERS Safety Report 19950398 (Version 3)
Quarter: 2021Q4

REPORT INFORMATION
  Report Type: Other
  Country: US (occurrence: None)
  Receive Date: 20211013
  Receipt Date: 20211203
  Transmission Date: 20220303
  Serious: Yes (Death)
  Sender: FDA-Public Use
  Company Number: US-ROCHE-2930407

PATIENT
  Age: 26 Year
  Sex: Male
  Weight: 31.8 kg

DRUGS (5)
  1. EVRYSDI [Suspect]
     Active Substance: RISDIPLAM
     Indication: Spinal muscular atrophy
     Dosage: GASTROSTOMY TUBE
     Route: 048
     Dates: start: 20200903, end: 20210510
  2. CLONAZEPAM [Concomitant]
     Active Substance: CLONAZEPAM
     Indication: Seizure
     Route: 048
  3. MONTELUKAST [Concomitant]
     Active Substance: MONTELUKAST SODIUM
     Indication: Hypersensitivity
  4. KEPPRA [Concomitant]
     Active Substance: LEVETIRACETAM
  5. VALPROIC ACID [Concomitant]
     Active Substance: VALPROIC ACID

REACTIONS (1)
  - Cardiac arrest [Fatal]

NARRATIVE: CASE EVENT DATE: 20211004
